FAERS Safety Report 24554613 (Version 1)
Quarter: 2024Q4

REPORT INFORMATION
  Report Type: Report from Study
  Country: PK (occurrence: PK)
  Receive Date: 20241028
  Receipt Date: 20241028
  Transmission Date: 20250114
  Serious: Yes (Death)
  Sender: ROCHE
  Company Number: PK-ROCHE-10000113081

PATIENT
  Age: 73 Year
  Sex: Male

DRUGS (2)
  1. MABTHERA [Suspect]
     Active Substance: RITUXIMAB
     Indication: Follicular lymphoma
     Route: 058
     Dates: start: 20240513
  2. MABTHERA [Suspect]
     Active Substance: RITUXIMAB
     Route: 058

REACTIONS (2)
  - Renal haemorrhage [Fatal]
  - Abdominal distension [Fatal]
